FAERS Safety Report 17215461 (Version 2)
Quarter: 2020Q4

REPORT INFORMATION
  Report Type: Report from Study
  Country: US (occurrence: US)
  Receive Date: 20191230
  Receipt Date: 20201229
  Transmission Date: 20210113
  Serious: No
  Sender: FDA-Public Use
  Company Number: US-CLOVIS ONCOLOGY-CLO-2019-002469

PATIENT
  Age: 70 Year
  Sex: Female

DRUGS (1)
  1. RUBRACA [Suspect]
     Active Substance: RUCAPARIB CAMSYLATE
     Indication: OVARIAN CANCER
     Dosage: 600 MG, DAILY
     Dates: start: 201911, end: 20200105

REACTIONS (7)
  - Abdominal distension [Unknown]
  - Dyspnoea [Unknown]
  - Adverse event [Unknown]
  - Peripheral swelling [Unknown]
  - Rash [Unknown]
  - Drug ineffective [Unknown]
  - Blood test abnormal [Unknown]

NARRATIVE: CASE EVENT DATE: 201911
